FAERS Safety Report 20187486 (Version 1)
Quarter: 2021Q4

REPORT INFORMATION
  Report Type: Spontaneous
  Country: US (occurrence: US)
  Receive Date: 20211215
  Receipt Date: 20211215
  Transmission Date: 20220303
  Serious: No
  Sender: FDA-Public Use
  Company Number: US-ELI_LILLY_AND_COMPANY-US202112005047

PATIENT
  Age: 50 Year
  Sex: Female

DRUGS (4)
  1. ADCIRCA [Suspect]
     Active Substance: TADALAFIL
     Indication: Pulmonary hypertension
     Dosage: 20 MG, BID
     Route: 065
     Dates: start: 20210511
  2. ORENITRAM [Suspect]
     Active Substance: TREPROSTINIL
     Indication: Pulmonary hypertension
     Dosage: 0.25 MG, TID
     Route: 065
     Dates: start: 20210217
  3. ORENITRAM [Suspect]
     Active Substance: TREPROSTINIL
     Dosage: 2.5 MG, DAILY
     Route: 065
     Dates: start: 20210217
  4. AMBRISENTAN [Suspect]
     Active Substance: AMBRISENTAN
     Indication: Pulmonary hypertension
     Dosage: 10 MG, DAILY
     Route: 065
     Dates: start: 20210505

REACTIONS (1)
  - Vision blurred [Not Recovered/Not Resolved]
